FAERS Safety Report 6240983-0 (Version None)
Quarter: 2009Q2

REPORT INFORMATION
  Report Type: 
  Country: None (occurrence: None)
  Receive Date: 20090623
  Receipt Date: 20090617
  Transmission Date: 20091009
  Serious: Yes (Hospitalization)
  Sender: FDA-Public Use
  Company Number: A0792044A

PATIENT
  Sex: Male

DRUGS (1)
  1. VERAMYST [Suspect]

REACTIONS (1)
  - HYPERSENSITIVITY [None]
